FAERS Safety Report 16608215 (Version 1)
Quarter: 2019Q3

REPORT INFORMATION
  Report Type: Spontaneous
  Country: FR (occurrence: FR)
  Receive Date: 20190722
  Receipt Date: 20190722
  Transmission Date: 20191004
  Serious: Yes (Other)
  Sender: FDA-Public Use
  Company Number: FR-PFIZER INC-2019304192

PATIENT
  Age: 73 Year
  Sex: Female
  Weight: 65 kg

DRUGS (10)
  1. PARACETAMOL [Concomitant]
     Active Substance: ACETAMINOPHEN
     Indication: CANCER PAIN
     Dosage: AS NEEDED
     Route: 048
  2. PREGABALINE [Concomitant]
     Active Substance: PREGABALIN
     Indication: CANCER PAIN
     Dosage: 600 MG, 1X/DAY
     Route: 048
     Dates: start: 2016
  3. AZITHROMYCIN DIHYDRATE. [Concomitant]
     Active Substance: AZITHROMYCIN DIHYDRATE
     Indication: RESPIRATORY TRACT INFLAMMATION
     Dosage: 750 MG, WEEKLY (250 MG /D MONDAY-WEDNESDAY-FRIDAY)
     Route: 048
     Dates: start: 201712
  4. ONBREZ BREEZHALER [Concomitant]
     Active Substance: INDACATEROL
     Indication: RESPIRATORY TRACT INFLAMMATION
     Dosage: UNK
     Route: 055
  5. SERTRALINE [Suspect]
     Active Substance: SERTRALINE HYDROCHLORIDE
     Indication: ANXIETY
     Dosage: 25 MG, 1X/DAY
     Route: 048
     Dates: start: 20170519, end: 20180119
  6. MOVICOL [Concomitant]
     Active Substance: POLYETHYLENE GLYCOL 3350\POTASSIUM CHLORIDE\SODIUM BICARBONATE\SODIUM CHLORIDE
     Indication: CONSTIPATION
     Dosage: 2 DF, 1X/DAY
     Route: 048
  7. VERSATIS [Concomitant]
     Active Substance: LIDOCAINE
     Indication: CANCER PAIN
     Dosage: 1 DF, 1X/DAY
     Route: 003
  8. TERBUTALINE SULFATE. [Concomitant]
     Active Substance: TERBUTALINE SULFATE
     Indication: RESPIRATORY TRACT INFLAMMATION
     Dosage: UNK
     Route: 055
  9. FRAXIPARINE [Concomitant]
     Active Substance: NADROPARIN CALCIUM
     Indication: THROMBOSIS PROPHYLAXIS
     Dosage: 2850 IU, 1X/DAY (0.3 ML)
     Route: 058
  10. SKENAN [Concomitant]
     Active Substance: MORPHINE SULFATE
     Indication: CANCER PAIN
     Dosage: 80 MG, 1X/DAY
     Route: 048
     Dates: start: 201711

REACTIONS (1)
  - Cholestasis [Recovered/Resolved]

NARRATIVE: CASE EVENT DATE: 20171030
